FAERS Safety Report 4505088-5 (Version None)
Quarter: 2004Q4

REPORT INFORMATION
  Report Type: 
  Country: None (occurrence: None)
  Receive Date: 20041116
  Receipt Date: 20041103
  Transmission Date: 20050328
  Serious: Yes (Death)
  Sender: FDA-Public Use
  Company Number: 206998

PATIENT
  Age: 50 Year
  Sex: Male

DRUGS (18)
  1. MABTHERA(RITUXIMAB) CONC FOR SOLUTION FOR INFUSION [Suspect]
     Indication: DIFFUSE LARGE B-CELL LYMPHOMA
     Dosage: 670 MG, INTRAVENOUS
     Route: 042
     Dates: start: 20040301, end: 20040504
  2. DEXAMETHASONE [Suspect]
     Indication: DIFFUSE LARGE B-CELL LYMPHOMA
     Dosage: 40 MG
     Dates: start: 20040316, end: 20040508
  3. CYTARABINE [Suspect]
     Indication: DIFFUSE LARGE B-CELL LYMPHOMA
     Dosage: SEE IMAGE
     Dates: start: 20040319
  4. CYTARABINE [Suspect]
     Indication: DIFFUSE LARGE B-CELL LYMPHOMA
     Dosage: SEE IMAGE
     Dates: start: 20040409
  5. CYTARABINE [Suspect]
     Indication: DIFFUSE LARGE B-CELL LYMPHOMA
     Dosage: SEE IMAGE
     Dates: start: 20040507
  6. CISPLATIN [Suspect]
     Indication: DIFFUSE LARGE B-CELL LYMPHOMA
     Dosage: SEE IMAGE
     Dates: start: 20040406, end: 20040504
  7. CISPLATIN [Suspect]
     Indication: DIFFUSE LARGE B-CELL LYMPHOMA
     Dosage: SEE IMAGE
     Dates: start: 20040316
  8. G-CSF (FILGRASTIM) [Concomitant]
  9. PANTOZOL (PANTOPRAZOLE) [Concomitant]
  10. NEOMYCIN (NEOMYCIN SULFATE) [Concomitant]
  11. DEXAMETHASONE [Concomitant]
  12. GRANOCYTE (LENOGRASTIM) [Concomitant]
  13. SELENASE (SELENIUM NOS) [Concomitant]
  14. MAGNESIUM SULFATE [Concomitant]
  15. ACETYLCYSTEINE [Concomitant]
  16. ZIENAM (CILASTATIN SODIUM, IMIPENEM) [Concomitant]
  17. METRONIDAZOLE [Concomitant]
  18. A/T/S (ERYTHROMYCIN) [Concomitant]

REACTIONS (5)
  - COLITIS [None]
  - NEUTROPENIA [None]
  - PERITONITIS [None]
  - PLATELET COUNT DECREASED [None]
  - SEPSIS [None]
